FAERS Safety Report 7034562-5 (Version None)
Quarter: 2010Q4

REPORT INFORMATION
  Report Type: 
  Country: None (occurrence: None)
  Receive Date: 20101008
  Receipt Date: 20100929
  Transmission Date: 20110411
  Serious: Yes (Other)
  Sender: FDA-Public Use
  Company Number: FR-NOVOPROD-315906

PATIENT
  Age: 58 Year
  Sex: Male

DRUGS (5)
  1. VICTOZA [Suspect]
     Indication: DIABETES MELLITUS
     Dosage: 0.6 MG, QD
     Route: 058
     Dates: start: 20100701
  2. VICTOZA [Suspect]
     Dosage: 1.2 MG, QD
     Route: 058
  3. FLUVASTATIN [Concomitant]
     Indication: HYPERCHOLESTEROLAEMIA
     Dosage: 40 MG, QD
     Route: 048
  4. DIAMICRON [Concomitant]
     Indication: DIABETES MELLITUS
     Dosage: UNK
  5. MEFORMIN [Concomitant]
     Indication: DIABETES MELLITUS

REACTIONS (1)
  - LIPASE INCREASED [None]
